FAERS Safety Report 5757395-6 (Version None)
Quarter: 2008Q2

REPORT INFORMATION
  Report Type: 
  Country: None (occurrence: None)
  Receive Date: 20080603
  Receipt Date: 20080530
  Transmission Date: 20081010
  Serious: Yes (Death, Other)
  Sender: FDA-Public Use
  Company Number: FR-BRISTOL-MYERS SQUIBB COMPANY-14026249

PATIENT
  Age: 75 Year
  Sex: Male
  Weight: 86 kg

DRUGS (14)
  1. SPRYCEL [Suspect]
     Indication: ACUTE LYMPHOCYTIC LEUKAEMIA
     Dosage: 50 MG TABLETS TWICE A DAY AND 20 MG TABLET TWICE A DAY
     Route: 048
     Dates: start: 20071130, end: 20071211
  2. MOPRAL [Concomitant]
     Route: 048
     Dates: start: 20071122, end: 20071214
  3. METHOTREXATE [Concomitant]
     Indication: ACUTE LYMPHOCYTIC LEUKAEMIA
  4. ARACYTINE [Concomitant]
     Indication: ACUTE LYMPHOCYTIC LEUKAEMIA
  5. METHYLPREDNISOLONE [Concomitant]
     Indication: ACUTE LYMPHOCYTIC LEUKAEMIA
  6. DECTANCYL [Concomitant]
     Indication: ACUTE LYMPHOCYTIC LEUKAEMIA
     Dosage: ON DAY 1-2 AND DAY 8-9 OF THE INDUCTION PHASE(30NOV07, 1DEC07, 7DEC07, AND 8DEC07
     Route: 048
     Dates: start: 20071120, end: 20071206
  7. VINCRISTINE [Concomitant]
     Indication: ACUTE LYMPHOCYTIC LEUKAEMIA
     Route: 042
     Dates: start: 20071207, end: 20071207
  8. ARANESP [Concomitant]
     Dates: start: 20071207
  9. CIPROFLOXACIN HCL [Concomitant]
     Indication: ANTIBIOTIC PROPHYLAXIS
     Route: 048
     Dates: start: 20071205, end: 20071214
  10. ZELITREX [Concomitant]
     Indication: ANTIVIRAL PROPHYLAXIS
     Route: 048
     Dates: start: 20071208, end: 20071214
  11. TAZOCILLINE [Concomitant]
     Indication: ANTIBIOTIC PROPHYLAXIS
     Dates: start: 20071208, end: 20071214
  12. BACTRIM DS [Concomitant]
     Indication: ANTIBIOTIC PROPHYLAXIS
     Dosage: 1 DOSAGE FORM = 3 AMP.
     Dates: start: 20071208, end: 20071214
  13. FASTURTEC [Concomitant]
     Indication: PROPHYLAXIS
  14. LASILIX [Concomitant]
     Indication: PROPHYLAXIS

REACTIONS (6)
  - ACUTE RESPIRATORY DISTRESS SYNDROME [None]
  - BRONCHOPULMONARY ASPERGILLOSIS [None]
  - HEPATOTOXICITY [None]
  - LUNG DISORDER [None]
  - MULTI-ORGAN FAILURE [None]
  - SHOCK [None]
